FAERS Safety Report 4705250-2 (Version None)
Quarter: 2005Q3

REPORT INFORMATION
  Report Type: 
  Country: None (occurrence: None)
  Receive Date: 20050701
  Receipt Date: 20050609
  Transmission Date: 20060218
  Serious: Yes (Hospitalization)
  Sender: FDA-Public Use
  Company Number: JP-ROCHE-407140

PATIENT
  Age: 44 Year
  Sex: Female

DRUGS (2)
  1. NICARDIPINE HCL [Suspect]
     Route: 042
     Dates: start: 20050318, end: 20050323
  2. NICARDIPINE HCL [Suspect]
     Route: 042
     Dates: start: 20050318, end: 20050318

REACTIONS (6)
  - CELLULITIS [None]
  - INFECTION [None]
  - INJECTION SITE ABSCESS [None]
  - PHLEBITIS [None]
  - SKIN ULCER [None]
  - VASCULITIS [None]
